FAERS Safety Report 16535464 (Version 2)
Quarter: 2019Q3

REPORT INFORMATION
  Report Type: Spontaneous
  Country: US (occurrence: US)
  Receive Date: 20190705
  Receipt Date: 20190729
  Transmission Date: 20191004
  Serious: No
  Sender: FDA-Public Use
  Company Number: US-PFIZER INC-2019287610

PATIENT
  Age: 55 Year
  Sex: Female

DRUGS (1)
  1. XELJANZ XR [Suspect]
     Active Substance: TOFACITINIB CITRATE
     Dosage: 11 MG, UNK
     Dates: start: 201905

REACTIONS (5)
  - Pain [Unknown]
  - Stress [Unknown]
  - Depression [Unknown]
  - Frustration tolerance decreased [Unknown]
  - Musculoskeletal pain [Unknown]
